FAERS Safety Report 6043467-8 (Version None)
Quarter: 2009Q1

REPORT INFORMATION
  Report Type: 
  Country: None (occurrence: None)
  Receive Date: 20090115
  Receipt Date: 20090106
  Transmission Date: 20090719
  Serious: Yes (Death)
  Sender: FDA-Public Use
  Company Number: ACO_00506_2009

PATIENT
  Age: 38 Year
  Sex: Male

DRUGS (2)
  1. TIZANIDINE HCL [Suspect]
     Indication: DRUG USE FOR UNKNOWN INDICATION
     Dosage: (DF)
  2. GLIMEPIRIDE [Suspect]
     Indication: DRUG USE FOR UNKNOWN INDICATION
     Dosage: (DF)

REACTIONS (2)
  - COMPLETED SUICIDE [None]
  - INTENTIONAL DRUG MISUSE [None]
